FAERS Safety Report 16050377 (Version 1)
Quarter: 2019Q1

REPORT INFORMATION
  Report Type: Spontaneous
  Country: US (occurrence: US)
  Receive Date: 20190308
  Receipt Date: 20190308
  Transmission Date: 20190418
  Serious: Yes (Death, Hospitalization, Other)
  Sender: FDA-Public Use
  Company Number: US-VIIV HEALTHCARE LIMITED-US2019GSK037430

PATIENT
  Age: 64 Year
  Sex: Male

DRUGS (6)
  1. FLUCONAZOLE. [Concomitant]
     Active Substance: FLUCONAZOLE
     Indication: CRYPTOCOCCOSIS
     Dosage: UNK
  2. DOLUTEGRAVIR [Suspect]
     Active Substance: DOLUTEGRAVIR
     Indication: HIV INFECTION
     Dosage: UNK
  3. LEVOFLOXACIN. [Concomitant]
     Active Substance: LEVOFLOXACIN
     Indication: PSEUDOMONAS INFECTION
     Dosage: UNK
  4. OLANZAPINE. [Concomitant]
     Active Substance: OLANZAPINE
     Indication: BIPOLAR DISORDER
     Dosage: UNK
  5. TENOFOVIR ALAFENMIDE FUMARATE [Suspect]
     Active Substance: TENOFOVIR ALAFENAMIDE FUMARATE
     Indication: HIV INFECTION
     Dosage: UNK
  6. EMTRICITABINE [Suspect]
     Active Substance: EMTRICITABINE
     Indication: HIV INFECTION
     Dosage: UNK

REACTIONS (40)
  - Immune reconstitution inflammatory syndrome [Unknown]
  - Impulsive behaviour [Unknown]
  - Acute kidney injury [Unknown]
  - Productive cough [None]
  - Asthenia [None]
  - Decreased appetite [None]
  - Abnormal loss of weight [None]
  - Cognitive disorder [None]
  - Mental impairment [Unknown]
  - Agitation [Unknown]
  - Blood alkaline phosphatase increased [Unknown]
  - Slow speech [None]
  - General physical condition decreased [None]
  - Blood 1,25-dihydroxycholecalciferol increased [Unknown]
  - Hepatic lesion [Unknown]
  - Granuloma [Unknown]
  - Alanine aminotransferase increased [Unknown]
  - Blood calcium increased [Unknown]
  - Pleural effusion [Unknown]
  - Bilirubin conjugated increased [Unknown]
  - Confusional state [None]
  - Hypotension [None]
  - Tumour lysis syndrome [Fatal]
  - Calcium ionised increased [Unknown]
  - Lymphadenopathy [Unknown]
  - Hepatomegaly [Unknown]
  - Blood bilirubin increased [Unknown]
  - Vitamin D increased [Unknown]
  - B-cell lymphoma [Unknown]
  - Blood creatinine increased [Unknown]
  - Facial wasting [None]
  - Pseudomonas infection [None]
  - Bipolar disorder [None]
  - Hypercalcaemia [Unknown]
  - Delirium [Unknown]
  - Aspartate aminotransferase increased [Unknown]
  - Blood 25-hydroxycholecalciferol increased [Unknown]
  - Blood albumin increased [Unknown]
  - Blood lactate dehydrogenase increased [Unknown]
  - Hepatic infiltration eosinophilic [Unknown]
